FAERS Safety Report 5136970-6 (Version None)
Quarter: 2006Q4

REPORT INFORMATION
  Report Type: 
  Country: None (occurrence: None)
  Receive Date: 20061030
  Receipt Date: 20061018
  Transmission Date: 20070319
  Serious: Yes (Other)
  Sender: FDA-Public Use
  Company Number: CA-JNJFOC-20061004076

PATIENT
  Age: 81 Year
  Sex: Female

DRUGS (3)
  1. REMICADE [Suspect]
     Indication: RHEUMATOID ARTHRITIS
     Route: 042
  2. COUMADIN [Suspect]
     Indication: AORTIC VALVE REPLACEMENT
  3. LOVENOX [Concomitant]

REACTIONS (1)
  - HAEMORRHAGE [None]
